FAERS Safety Report 13964200 (Version 2)
Quarter: 2019Q2

REPORT INFORMATION
  Report Type: Spontaneous
  Country: TW (occurrence: TW)
  Receive Date: 20170913
  Receipt Date: 20190607
  Transmission Date: 20190711
  Serious: Yes (Death, Hospitalization)
  Sender: FDA-Public Use
  Company Number: TW-ACTELION-A-CH2017-159054

PATIENT
  Age: 48 Year
  Sex: Male

DRUGS (2)
  1. SILDENAFIL. [Concomitant]
     Active Substance: SILDENAFIL
  2. TRACLEER [Suspect]
     Active Substance: BOSENTAN
     Indication: PULMONARY ARTERIAL HYPERTENSION
     Route: 048

REACTIONS (6)
  - Septic shock [Unknown]
  - Cerebral infarction [Fatal]
  - Brain abscess [Unknown]
  - Haemodialysis [Unknown]
  - Abscess drainage [Unknown]
  - Acute kidney injury [Unknown]
